FAERS Safety Report 6235074-9 (Version None)
Quarter: 2009Q2

REPORT INFORMATION
  Report Type: 
  Country: None (occurrence: None)
  Receive Date: 20090618
  Receipt Date: 20090609
  Transmission Date: 20091009
  Serious: No
  Sender: FDA-Public Use
  Company Number: PHEH2009US05987

PATIENT
  Sex: Male

DRUGS (9)
  1. TASIGNA [Suspect]
     Indication: CHRONIC MYELOID LEUKAEMIA
     Dosage: 400 MG, Q12H
     Route: 048
     Dates: start: 20081001
  2. VICOPROFEN [Concomitant]
  3. AMBIEN [Concomitant]
  4. LISINOPRIL [Concomitant]
  5. CRESTOR [Concomitant]
  6. ATENOLOL [Concomitant]
  7. FEXOFENADINE [Concomitant]
  8. PANTOPRAZOLE SODIUM [Concomitant]
  9. GLIMEPIRIDE [Concomitant]

REACTIONS (2)
  - ABDOMINAL PAIN [None]
  - MEDICATION ERROR [None]
